FAERS Safety Report 15095202 (Version 1)
Quarter: 2018Q3

REPORT INFORMATION
  Report Type: Spontaneous
  Country: US (occurrence: US)
  Receive Date: 20180702
  Receipt Date: 20180702
  Transmission Date: 20181010
  Serious: No
  Sender: FDA-Public Use
  Company Number: US-GLENMARK PHARMACEUTICALS-2018GMK031304

PATIENT

DRUGS (1)
  1. MUPIROCIN. [Suspect]
     Active Substance: MUPIROCIN
     Indication: INCREASED VISCOSITY OF UPPER RESPIRATORY SECRETION
     Dosage: UNK
     Route: 065
     Dates: start: 20180112

REACTIONS (4)
  - Product use in unapproved indication [Unknown]
  - Incorrect route of drug administration [Unknown]
  - Increased viscosity of upper respiratory secretion [Unknown]
  - Condition aggravated [Unknown]

NARRATIVE: CASE EVENT DATE: 20180112
